FAERS Safety Report 4963394-4 (Version None)
Quarter: 2006Q2

REPORT INFORMATION
  Report Type: 
  Country: None (occurrence: None)
  Receive Date: 20060404
  Receipt Date: 20060404
  Transmission Date: 20061013
  Serious: No
  Sender: FDA-Public Use
  Company Number: None

PATIENT
  Age: 79 Year
  Sex: Male

DRUGS (1)
  1. LORAZEPAM [Suspect]
     Dosage: 0.5 MG IMQ 6HR PRN AGITATION

REACTIONS (3)
  - DYSPNOEA [None]
  - RESPIRATORY ACIDOSIS [None]
  - UNRESPONSIVE TO VERBAL STIMULI [None]
